FAERS Safety Report 7404909-6 (Version None)
Quarter: 2011Q2

REPORT INFORMATION
  Report Type: 
  Country: None (occurrence: None)
  Receive Date: 20110411
  Receipt Date: 20110330
  Transmission Date: 20111010
  Serious: Yes (Other)
  Sender: FDA-Public Use
  Company Number: US-JNJFOC-20110402807

PATIENT
  Sex: Female

DRUGS (3)
  1. DURAGESIC [Suspect]
     Indication: COMPLEX REGIONAL PAIN SYNDROME
     Route: 062
  2. FENATNYL TRANSDERMAL SYSTEM [Suspect]
     Indication: COMPLEX REGIONAL PAIN SYNDROME
     Route: 062
  3. DURAGESIC [Suspect]
     Route: 062

REACTIONS (3)
  - LOWER RESPIRATORY TRACT INFECTION [None]
  - DYSPNOEA [None]
  - CHEST PAIN [None]
